FAERS Safety Report 5222928-5 (Version None)
Quarter: 2007Q1

REPORT INFORMATION
  Report Type: 
  Country: None (occurrence: None)
  Receive Date: 20061208
  Receipt Date: 20060310
  Transmission Date: 20070707
  Serious: Yes (Other)
  Sender: FDA-Public Use
  Company Number: 2006034816

PATIENT
  Age: 48 Year
  Sex: Male
  Weight: 87.0906 kg

DRUGS (2)
  1. VIAGRA [Suspect]
     Indication: ERECTILE DYSFUNCTION
     Dosage: (100 MG, PRN), ORAL
     Route: 048
     Dates: start: 20060309
  2. VIAGRA [Suspect]
     Indication: LIBIDO INCREASED
     Dosage: (100 MG, PRN), ORAL
     Route: 048
     Dates: start: 20060309

REACTIONS (1)
  - ERECTION INCREASED [None]
